FAERS Safety Report 6967835-2 (Version None)
Quarter: 2010Q3

REPORT INFORMATION
  Report Type: 
  Country: None (occurrence: None)
  Receive Date: 20100907
  Receipt Date: 20100201
  Transmission Date: 20110219
  Serious: No
  Sender: FDA-Public Use
  Company Number: A0842351A

PATIENT
  Age: 65 Year
  Sex: Female

DRUGS (2)
  1. REQUIP [Suspect]
     Indication: RESTLESS LEGS SYNDROME
     Dosage: 1MG AT NIGHT
     Route: 048
  2. METOPROLOL TARTRATE [Suspect]
     Route: 065
     Dates: start: 20100127, end: 20100131

REACTIONS (1)
  - RESTLESS LEGS SYNDROME [None]
